FAERS Safety Report 23668953 (Version 1)
Quarter: 2024Q1

REPORT INFORMATION
  Report Type: Spontaneous
  Country: BR (occurrence: BR)
  Receive Date: 20240325
  Receipt Date: 20240325
  Transmission Date: 20240410
  Serious: Yes (Other)
  Sender: FDA-Public Use
  Company Number: BR-ANIPHARMA-2024-BR-000023

PATIENT
  Sex: Male

DRUGS (11)
  1. ATACAND [Suspect]
     Active Substance: CANDESARTAN CILEXETIL
     Indication: Blood pressure measurement
     Dosage: 8 MG DAILY
     Route: 048
  2. BUPRENORPHINE [Concomitant]
     Active Substance: BUPRENORPHINE
     Dosage: 5 MG WEEK
  3. LOPERAMIDE [Concomitant]
     Active Substance: LOPERAMIDE
  4. DAPAGLIFLOZIN [Suspect]
     Active Substance: DAPAGLIFLOZIN
     Dosage: 5 MG DAILY
     Route: 048
  5. INLYTA [Concomitant]
     Active Substance: AXITINIB
     Dosage: 2 TABLETS PER DAY
     Dates: start: 202309
  6. MONOCARDIL [Concomitant]
     Dosage: 50 MG QAM
  7. LIVALO [Concomitant]
     Active Substance: PITAVASTATIN CALCIUM
     Dosage: 2 MG HS
  8. PATZ [Concomitant]
  9. JANUVIA [Concomitant]
     Active Substance: SITAGLIPTIN PHOSPHATE
     Dosage: 30 MG BID / DOSE: 25 MG HS
  10. ELIQUIS [Concomitant]
     Active Substance: APIXABAN
     Dosage: 2.5 MG BID
  11. ZOLPIDEM [Concomitant]
     Active Substance: ZOLPIDEM TARTRATE
     Dosage: 10 MG HS

REACTIONS (4)
  - Clear cell renal cell carcinoma [Not Recovered/Not Resolved]
  - Diarrhoea [Unknown]
  - Cataract [Unknown]
  - Metastases to lung [Not Recovered/Not Resolved]

NARRATIVE: CASE EVENT DATE: 20170101
